FAERS Safety Report 14980514 (Version 3)
Quarter: 2019Q2

REPORT INFORMATION
  Report Type: Spontaneous
  Country: US (occurrence: US)
  Receive Date: 20180606
  Receipt Date: 20190423
  Transmission Date: 20190711
  Serious: No
  Sender: FDA-Public Use
  Company Number: US-ACTELION-A-US2018-173133

PATIENT
  Age: 38 Year
  Sex: Female

DRUGS (2)
  1. OPSUMIT [Suspect]
     Active Substance: MACITENTAN
     Indication: PULMONARY ARTERIAL HYPERTENSION
     Dosage: 10 MG, QD
     Route: 048
     Dates: start: 20180508
  2. ADEMPAS [Suspect]
     Active Substance: RIOCIGUAT
     Indication: PRODUCT USED FOR UNKNOWN INDICATION
     Route: 065

REACTIONS (6)
  - Gastrooesophageal reflux disease [Recovering/Resolving]
  - Dyspepsia [Unknown]
  - Condition aggravated [Recovering/Resolving]
  - Sinus congestion [Unknown]
  - Lacrimation increased [Unknown]
  - Headache [Unknown]

NARRATIVE: CASE EVENT DATE: 20180512
